FAERS Safety Report 24252308 (Version 1)
Quarter: 2024Q3

REPORT INFORMATION
  Report Type: Spontaneous
  Country: US (occurrence: US)
  Receive Date: 20240827
  Receipt Date: 20240827
  Transmission Date: 20241017
  Serious: No
  Sender: GLAUKOS
  Company Number: US-GLK-002370

PATIENT
  Age: 20 Year
  Sex: Male

DRUGS (2)
  1. PHOTREXA [Suspect]
     Active Substance: RIBOFLAVIN 5^-PHOSPHATE SODIUM
     Indication: Keratoconus
     Dosage: RIGHT EYE (OD)
     Route: 047
     Dates: start: 20240507, end: 20240507
  2. PHOTREXA VISCOUS [Suspect]
     Active Substance: RIBOFLAVIN 5^-PHOSPHATE SODIUM
     Indication: Keratoconus
     Dosage: RIGHT EYE (OD)
     Route: 047
     Dates: start: 20240507, end: 20240507

REACTIONS (5)
  - Corneal infiltrates [Unknown]
  - Corneal opacity [Unknown]
  - Visual acuity reduced [Unknown]
  - Glare [Unknown]
  - Visual impairment [Unknown]

NARRATIVE: CASE EVENT DATE: 20240514
